FAERS Safety Report 5165417-9 (Version None)
Quarter: 2006Q4

REPORT INFORMATION
  Report Type: 
  Country: None (occurrence: None)
  Receive Date: 20061206
  Receipt Date: 20061124
  Transmission Date: 20070319
  Serious: Yes (Hospitalization)
  Sender: FDA-Public Use
  Company Number: PHHO2006BE19902

PATIENT
  Age: 60 Year
  Sex: Male
  Weight: 76.1 kg

DRUGS (10)
  1. RAD [Suspect]
     Indication: RENAL TRANSPLANT
     Dosage: 1.75 MG / DAY
     Route: 048
     Dates: start: 20060808
  2. NEORAL [Suspect]
     Indication: RENAL TRANSPLANT
     Dosage: 100 MG / DAY
     Route: 048
  3. MEDROL [Concomitant]
  4. BACTRIM DS [Concomitant]
  5. ALPHA [Concomitant]
  6. ZANTAC [Concomitant]
  7. AMLODIPINE [Concomitant]
  8. LIPITOR [Concomitant]
  9. METOPROLOL SUCCINATE [Concomitant]
  10. CALCIUM CARBONATE [Concomitant]

REACTIONS (8)
  - CHRONIC ALLOGRAFT NEPHROPATHY [None]
  - ESCHERICHIA INFECTION [None]
  - HYDRONEPHROSIS [None]
  - LYMPHOCELE [None]
  - LYMPHOCELE MARSUPIALISATION [None]
  - PYREXIA [None]
  - RENAL ARTERIOSCLEROSIS [None]
  - URINARY TRACT INFECTION [None]
